FAERS Safety Report 8337729 (Version 4)
Quarter: 2019Q1

REPORT INFORMATION
  Report Type: Spontaneous
  Country: FR (occurrence: FR)
  Receive Date: 20120116
  Receipt Date: 20190315
  Transmission Date: 20190418
  Serious: Yes (Other)
  Sender: FDA-Public Use
  Company Number: FR-SANOFI-AVENTIS-2012SA000453

PATIENT
  Age: 29 Year
  Sex: Male
  Weight: 73 kg

DRUGS (16)
  1. METHOTREXATE. [Concomitant]
     Active Substance: METHOTREXATE
     Dosage: UNK
     Route: 024
     Dates: start: 20111031
  2. EVOLTRA [Suspect]
     Active Substance: CLOFARABINE
     Dosage: 55.5 MG,QD
     Route: 042
     Dates: start: 20111101, end: 20111103
  3. STILNOX [Concomitant]
     Active Substance: ZOLPIDEM TARTRATE
     Dosage: UNK UNK, UNK
     Route: 065
     Dates: start: 20111103
  4. DEPO-MEDROL [Concomitant]
     Active Substance: METHYLPREDNISOLONE ACETATE
     Dosage: UNK
     Route: 024
     Dates: start: 20111031
  5. NOVANTRONE [Suspect]
     Active Substance: MITOXANTRONE HYDROCHLORIDE
     Indication: PRODUCT USED FOR UNKNOWN INDICATION
     Dosage: 14.8 MG,1X
     Route: 042
     Dates: start: 20111103, end: 20111104
  6. INIPOMP [Concomitant]
     Active Substance: PANTOPRAZOLE SODIUM
     Dosage: 40 MG, 1X
     Route: 065
  7. FASTURTEC [Suspect]
     Active Substance: RASBURICASE
     Indication: PRODUCT USED FOR UNKNOWN INDICATION
     Dosage: UNK UNK,UNK
     Route: 042
     Dates: start: 20111101
  8. DEXAMETHASONE SODIUM PHOSPHATE. [Suspect]
     Active Substance: DEXAMETHASONE SODIUM PHOSPHATE
     Dosage: UNK UNK,UNK
     Route: 042
     Dates: start: 20111101, end: 20111104
  9. VEPESIDE [Suspect]
     Active Substance: ETOPOSIDE
     Dosage: 277.5 MG,1X
     Route: 042
     Dates: start: 20111103, end: 20111104
  10. IXPRIM [Concomitant]
     Active Substance: ACETAMINOPHEN\TRAMADOL HYDROCHLORIDE
     Dosage: 2 DF
     Route: 048
  11. ZOPHREN [ONDANSETRON] [Concomitant]
     Active Substance: ONDANSETRON
     Dosage: UNK
     Dates: start: 20111101
  12. PROFENID [Concomitant]
     Active Substance: KETOPROFEN
     Dosage: 100 MG, 1X
     Route: 065
  13. TAVANIC [Concomitant]
     Active Substance: LEVOFLOXACIN
     Dosage: UNK UNK, UNK
     Route: 048
     Dates: start: 20111101
  14. EMEND [Concomitant]
     Active Substance: APREPITANT
     Dosage: UNK
     Route: 048
     Dates: start: 20111101
  15. EMEND [Concomitant]
     Active Substance: APREPITANT
     Route: 048
     Dates: start: 20111102, end: 20111104
  16. ARACYTINE [Concomitant]
     Active Substance: CYTARABINE
     Dosage: UNK
     Route: 024
     Dates: start: 20111031

REACTIONS (2)
  - Prothrombin time shortened [Recovered/Resolved]
  - Hepatitis [Recovered/Resolved]

NARRATIVE: CASE EVENT DATE: 20111104
